FAERS Safety Report 5590550-7 (Version None)
Quarter: 2008Q1

REPORT INFORMATION
  Report Type: 
  Country: None (occurrence: None)
  Receive Date: 20080114
  Receipt Date: 20080107
  Transmission Date: 20080703
  Serious: Yes (Life-Threatening, Hospitalization)
  Sender: FDA-Public Use
  Company Number: US-BAXTER-2008BH000217

PATIENT
  Age: 38 Year
  Sex: Female
  Weight: 72 kg

DRUGS (21)
  1. FENTANYL CITRATE [Suspect]
     Indication: ANALGESIA
     Route: 042
     Dates: start: 20071219, end: 20071219
  2. MORPHINE SULFATE [Suspect]
     Indication: ANALGESIA
     Route: 042
     Dates: start: 20071219, end: 20071219
  3. MORPHINE SULFATE [Suspect]
     Route: 042
     Dates: start: 20071219, end: 20071219
  4. SCHERING-PLOUGH BLINDED THERAPY [Suspect]
     Indication: PROPHYLAXIS OF NAUSEA AND VOMITING
     Dosage: DOSE UNIT:UNKNOWN
     Route: 048
     Dates: start: 20071219, end: 20071219
  5. ADVAIR DISKUS 100/50 [Concomitant]
     Indication: DRUG USE FOR UNKNOWN INDICATION
     Route: 065
     Dates: end: 20071218
  6. PRO-AIR [Concomitant]
     Indication: DRUG USE FOR UNKNOWN INDICATION
     Route: 065
  7. ADVIL LIQUI-GELS [Concomitant]
     Indication: DRUG USE FOR UNKNOWN INDICATION
     Route: 065
     Dates: end: 20071212
  8. VERSED [Concomitant]
     Indication: DRUG USE FOR UNKNOWN INDICATION
     Route: 065
     Dates: start: 20071219, end: 20071219
  9. PEPCID [Concomitant]
     Indication: DRUG USE FOR UNKNOWN INDICATION
     Route: 065
     Dates: start: 20071219, end: 20071219
  10. ANCEF [Concomitant]
     Indication: DRUG USE FOR UNKNOWN INDICATION
     Route: 065
     Dates: start: 20071219, end: 20071219
  11. SEVOFLURANE [Concomitant]
     Indication: DRUG USE FOR UNKNOWN INDICATION
     Route: 065
     Dates: start: 20071219, end: 20071219
  12. NITROUS OXIDE [Concomitant]
     Indication: DRUG USE FOR UNKNOWN INDICATION
     Route: 065
     Dates: start: 20071219, end: 20071219
  13. DIPRIVAN [Concomitant]
     Indication: DRUG USE FOR UNKNOWN INDICATION
     Route: 065
     Dates: start: 20071219, end: 20071219
  14. ANECTINE [Concomitant]
     Indication: DRUG USE FOR UNKNOWN INDICATION
     Route: 065
     Dates: start: 20071219, end: 20071219
  15. NIMBEX [Concomitant]
     Indication: DRUG USE FOR UNKNOWN INDICATION
     Route: 065
     Dates: start: 20071219, end: 20071219
  16. VERSED [Concomitant]
     Route: 065
     Dates: start: 20071219, end: 20071219
  17. TORADOL [Concomitant]
     Indication: DRUG USE FOR UNKNOWN INDICATION
     Route: 065
     Dates: start: 20071219, end: 20071219
  18. ZOFRAN [Concomitant]
     Indication: DRUG USE FOR UNKNOWN INDICATION
     Route: 065
     Dates: start: 20071219, end: 20071219
  19. NARCAN [Concomitant]
     Indication: DRUG USE FOR UNKNOWN INDICATION
     Route: 065
     Dates: start: 20071219, end: 20071219
  20. NARCAN [Concomitant]
     Route: 065
     Dates: start: 20071219, end: 20071219
  21. ONDANSETRON [Concomitant]
     Indication: DRUG USE FOR UNKNOWN INDICATION
     Route: 065
     Dates: start: 20071219, end: 20071219

REACTIONS (6)
  - APNOEA [None]
  - AURA [None]
  - DEPRESSED LEVEL OF CONSCIOUSNESS [None]
  - HYPOVENTILATION [None]
  - RESPIRATORY RATE DECREASED [None]
  - SOMNOLENCE [None]
